FAERS Safety Report 7153358-7 (Version None)
Quarter: 2010Q4

REPORT INFORMATION
  Report Type: 
  Country: None (occurrence: None)
  Receive Date: 20101213
  Receipt Date: 20101208
  Transmission Date: 20110411
  Serious: Yes (Death)
  Sender: FDA-Public Use
  Company Number: TN-SANOFI-AVENTIS-2010SA074548

PATIENT
  Age: 85 Year
  Sex: Male

DRUGS (7)
  1. PLAVIX [Suspect]
     Indication: MYOCARDIAL INFARCTION
     Route: 048
     Dates: start: 20100125, end: 20100825
  2. PLAVIX [Suspect]
     Route: 048
     Dates: start: 20100125, end: 20100825
  3. ASPIRIN [Concomitant]
     Route: 048
     Dates: end: 20100825
  4. AVLOCARDYL [Concomitant]
     Route: 048
  5. CORDARONE [Concomitant]
     Route: 048
  6. ROSUVASTATIN CALCIUM [Concomitant]
     Route: 048
     Dates: end: 20100825
  7. FAMODINE [Concomitant]
     Route: 048
     Dates: end: 20100825

REACTIONS (3)
  - CONDITION AGGRAVATED [None]
  - METASTASIS [None]
  - PROSTATE CANCER [None]
